FAERS Safety Report 25093642 (Version 1)
Quarter: 2025Q1

REPORT INFORMATION
  Report Type: Spontaneous
  Country: PL (occurrence: PL)
  Receive Date: 20250319
  Receipt Date: 20250319
  Transmission Date: 20250409
  Serious: Yes (Other)
  Sender: AUROBINDO
  Company Number: PL-AUROBINDO-AUR-APL-2025-014421

PATIENT
  Sex: Male

DRUGS (15)
  1. FUROSEMIDE [Suspect]
     Active Substance: FUROSEMIDE
     Indication: Polyuria
     Route: 065
  2. CALCIUM [Suspect]
     Active Substance: CALCIUM
     Indication: Polyuria
     Route: 065
  3. CALCIUM [Suspect]
     Active Substance: CALCIUM
     Indication: Prophylaxis
  4. SODIUM CHLORIDE [Suspect]
     Active Substance: SODIUM CHLORIDE
     Indication: Polyuria
     Route: 065
  5. SODIUM CHLORIDE [Suspect]
     Active Substance: SODIUM CHLORIDE
     Indication: Prophylaxis
  6. VITAMIN D [Suspect]
     Active Substance: VITAMIN D NOS
     Indication: Polyuria
     Route: 065
  7. VITAMIN D [Suspect]
     Active Substance: VITAMIN D NOS
     Indication: Prophylaxis
  8. SODIUM BICARBONATE [Suspect]
     Active Substance: SODIUM BICARBONATE
     Indication: Polyuria
     Route: 065
  9. SODIUM BICARBONATE [Suspect]
     Active Substance: SODIUM BICARBONATE
     Indication: Prophylaxis
  10. IRON [Suspect]
     Active Substance: IRON
     Indication: Polyuria
     Route: 065
  11. IRON [Suspect]
     Active Substance: IRON
     Indication: Prophylaxis
  12. Immunoglobulin [Concomitant]
     Indication: Blood immunoglobulin G decreased
     Route: 065
  13. Immunoglobulin [Concomitant]
     Indication: Infection
  14. FLUDROCORTISONE [Concomitant]
     Active Substance: FLUDROCORTISONE
     Indication: Adrenal insufficiency
     Route: 065
  15. DEXAMETHASONE [Concomitant]
     Active Substance: DEXAMETHASONE
     Indication: Adrenal insufficiency

REACTIONS (1)
  - Drug ineffective [Unknown]
